FAERS Safety Report 6945310-9 (Version None)
Quarter: 2010Q3

REPORT INFORMATION
  Report Type: 
  Country: None (occurrence: None)
  Receive Date: 20100827
  Receipt Date: 20100727
  Transmission Date: 20110219
  Serious: No
  Sender: FDA-Public Use
  Company Number: US-BAYER-201018915BCC

PATIENT
  Age: 74 Year
  Sex: Male
  Weight: 104 kg

DRUGS (4)
  1. ALEVE (CAPLET) [Suspect]
     Indication: MUSCLE SPASMS
     Dosage: TOTAL DAILY DOSE: 440 MG  UNIT DOSE: 220 MG
     Route: 048
     Dates: start: 20100101
  2. ENTERIC COATED BAYER ASPIRIN [Concomitant]
     Route: 065
  3. LISINOPRIL [Concomitant]
     Route: 065
  4. SIMVASTATIN [Concomitant]
     Route: 065

REACTIONS (1)
  - EPISTAXIS [None]
